FAERS Safety Report 11999787 (Version 18)
Quarter: 2021Q3

REPORT INFORMATION
  Report Type: Other
  Country: CA (occurrence: CA)
  Receive Date: 20160204
  Receipt Date: 20210903
  Transmission Date: 20211014
  Serious: Yes (Hospitalization, Other)
  Sender: FDA-Public Use
  Company Number: CA-ROCHE-1618751

PATIENT
  Age: 61 Year
  Sex: Male

DRUGS (22)
  1. METHYLPREDNISOLONE. [Concomitant]
     Active Substance: METHYLPREDNISOLONE
     Route: 042
     Dates: start: 20150805
  2. DIPHENHYDRAMINE HCL [Concomitant]
     Active Substance: DIPHENHYDRAMINE HYDROCHLORIDE
     Route: 048
     Dates: start: 20150805
  3. ACETAMINOPHEN. [Concomitant]
     Active Substance: ACETAMINOPHEN
     Route: 048
     Dates: start: 20150805
  4. DEXILANT [Concomitant]
     Active Substance: DEXLANSOPRAZOLE
  5. RITUXAN [Suspect]
     Active Substance: RITUXIMAB
     Route: 042
     Dates: start: 20180328, end: 20180328
  6. PLAQUENIL [Suspect]
     Active Substance: HYDROXYCHLOROQUINE SULFATE
     Indication: PRODUCT USED FOR UNKNOWN INDICATION
     Route: 065
  7. AAS [Concomitant]
     Active Substance: ASPIRIN
  8. DOCUSATE [Concomitant]
     Active Substance: DOCUSATE
  9. SOLU?MEDROL [Concomitant]
     Active Substance: METHYLPREDNISOLONE SODIUM SUCCINATE
     Indication: PREMEDICATION
     Route: 042
     Dates: start: 20150805
  10. FOLIC ACID. [Concomitant]
     Active Substance: FOLIC ACID
  11. PREDNISONE. [Concomitant]
     Active Substance: PREDNISONE
  12. ACTONEL [Concomitant]
     Active Substance: RISEDRONATE SODIUM
  13. HYDROXYCHLOROQUINE [Concomitant]
     Active Substance: HYDROXYCHLOROQUINE
  14. HYDROMORPHONE [Concomitant]
     Active Substance: HYDROMORPHONE
  15. PREGABALIN. [Concomitant]
     Active Substance: PREGABALIN
  16. ROSUVASTATIN. [Concomitant]
     Active Substance: ROSUVASTATIN
  17. COVERSYL [Concomitant]
     Active Substance: PERINDOPRIL
  18. ASPIRIN. [Concomitant]
     Active Substance: ASPIRIN
  19. METHOTREXATE. [Concomitant]
     Active Substance: METHOTREXATE
  20. CALCIUM [Concomitant]
     Active Substance: CALCIUM
  21. RITUXAN [Suspect]
     Active Substance: RITUXIMAB
     Indication: RHEUMATOID ARTHRITIS
     Dosage: PREVIOUS RITUXAN INFUSION: 25/FEB/2020
     Route: 042
     Dates: start: 20150805
  22. CLONAZEPAM. [Concomitant]
     Active Substance: CLONAZEPAM

REACTIONS (16)
  - Pneumonia fungal [Recovered/Resolved]
  - Blood pressure diastolic increased [Unknown]
  - Drug hypersensitivity [Recovered/Resolved]
  - Infusion related reaction [Recovered/Resolved]
  - Pneumonia [Not Recovered/Not Resolved]
  - White blood cell count decreased [Recovered/Resolved]
  - Blood pressure increased [Unknown]
  - Pyrexia [Recovered/Resolved]
  - Blood pressure diastolic abnormal [Unknown]
  - Oxygen saturation decreased [Unknown]
  - Fatigue [Not Recovered/Not Resolved]
  - Fatigue [Recovered/Resolved]
  - Immune system disorder [Recovered/Resolved]
  - Nasopharyngitis [Not Recovered/Not Resolved]
  - Cough [Not Recovered/Not Resolved]
  - Oxygen saturation decreased [Unknown]

NARRATIVE: CASE EVENT DATE: 20150805
